FAERS Safety Report 7390555-X (Version None)
Quarter: 2011Q2

REPORT INFORMATION
  Report Type: 
  Country: None (occurrence: None)
  Receive Date: 20110404
  Receipt Date: 20110325
  Transmission Date: 20111010
  Serious: Yes (Hospitalization, Other)
  Sender: FDA-Public Use
  Company Number: US-BIOGENIDEC-2010BI008426

PATIENT
  Age: 56 Year
  Sex: Male

DRUGS (18)
  1. BACLOFEN [Concomitant]
     Route: 048
     Dates: start: 20100613
  2. TYSABRI [Suspect]
     Indication: MULTIPLE SCLEROSIS
     Route: 042
     Dates: start: 20080616
  3. FLEXERIL [Concomitant]
  4. COUMADIN [Concomitant]
     Indication: PERIPHERAL VASCULAR DISORDER
  5. NORCO 5/325 [Concomitant]
     Indication: PAIN
     Route: 048
     Dates: start: 20100622
  6. LISINOPRIL [Concomitant]
     Route: 048
  7. ACETAMINOPHEN [Concomitant]
     Route: 048
     Dates: start: 20100613
  8. MECLIZINE [Concomitant]
  9. SERTRALINE HYDROCHLORIDE [Concomitant]
     Dates: start: 20100615
  10. ENABLEX [Concomitant]
     Route: 048
  11. AMITRIPTYLINE HCL [Concomitant]
  12. DEXAMETHASONE [Concomitant]
  13. CALCIUM [Concomitant]
  14. ENALAPRIL [Concomitant]
  15. ONDANSETRON [Concomitant]
  16. OXYBUTYNIN [Concomitant]
     Route: 048
     Dates: start: 20100613
  17. OMEPRAZOLE [Concomitant]
     Route: 048
  18. SERTRALINE HYDROCHLORIDE [Concomitant]

REACTIONS (2)
  - DEEP VEIN THROMBOSIS [None]
  - CEREBELLAR HAEMORRHAGE [None]
